FAERS Safety Report 23265004 (Version 3)
Quarter: 2024Q1

REPORT INFORMATION
  Report Type: Spontaneous
  Country: GB (occurrence: GB)
  Receive Date: 20231206
  Receipt Date: 20240219
  Transmission Date: 20240410
  Serious: No
  Sender: FDA-Public Use
  Company Number: None

PATIENT
  Age: 51 Year
  Sex: Male

DRUGS (1)
  1. SERTRALINE [Suspect]
     Active Substance: SERTRALINE HYDROCHLORIDE
     Indication: Depressed mood
     Dosage: 50 MG ONCE A DAY
     Dates: start: 20230626, end: 20231121

REACTIONS (3)
  - Hyperhidrosis [Unknown]
  - Irritability [Unknown]
  - Depressed mood [Unknown]
